FAERS Safety Report 24291586 (Version 1)
Quarter: 2024Q3

REPORT INFORMATION
  Report Type: Spontaneous
  Country: US (occurrence: None)
  Receive Date: 20240906
  Receipt Date: 20240906
  Transmission Date: 20241016
  Serious: No
  Sender: DOMPE FARMACEUTICI
  Company Number: US-FARMAPROD-202308-202309-2836

PATIENT
  Age: 67 Year
  Sex: Female

DRUGS (8)
  1. OXERVATE [Suspect]
     Active Substance: CENEGERMIN-BKBJ
     Indication: Neurotrophic keratopathy
     Route: 047
     Dates: start: 20230829
  2. VALACYCLOVIR [Concomitant]
     Active Substance: VALACYCLOVIR HYDROCHLORIDE
  3. COLLAGEN HYDROLYSATE [Concomitant]
  4. OCUVITE ADULT 50 PLUS [Concomitant]
  5. MULTI-VITAMIN DAILY [Concomitant]
  6. DORZOLAMIDE [Concomitant]
     Active Substance: DORZOLAMIDE
  7. LATANOPROST [Concomitant]
     Active Substance: LATANOPROST
  8. MOXIFLOXACIN [Concomitant]
     Active Substance: MOXIFLOXACIN

REACTIONS (1)
  - Urinary tract infection [Not Recovered/Not Resolved]

NARRATIVE: CASE EVENT DATE: 20230916
